FAERS Safety Report 10205173 (Version 1)
Quarter: 2014Q2

REPORT INFORMATION
  Report Type: Spontaneous
  Country: US (occurrence: US)
  Receive Date: 20140529
  Receipt Date: 20140529
  Transmission Date: 20141212
  Serious: Yes (Other)
  Sender: FDA-Public Use
  Company Number: US-ASTRAZENECA-2014SE32851

PATIENT
  Age: 49 Year
  Sex: Male
  Weight: 76.2 kg

DRUGS (16)
  1. NEXIUM [Suspect]
     Indication: GASTROOESOPHAGEAL REFLUX DISEASE
     Route: 048
  2. NEXIUM [Suspect]
     Indication: EPISTAXIS
     Route: 048
  3. NEXIUM [Suspect]
     Indication: GASTROOESOPHAGEAL REFLUX DISEASE
     Route: 048
     Dates: start: 2004, end: 201404
  4. NEXIUM [Suspect]
     Indication: EPISTAXIS
     Route: 048
     Dates: start: 2004, end: 201404
  5. NEXIUM [Suspect]
     Indication: GASTROOESOPHAGEAL REFLUX DISEASE
     Dosage: SOMETIMES TAKES NEXIUM TWICE DAILY
     Route: 048
  6. NEXIUM [Suspect]
     Indication: EPISTAXIS
     Dosage: SOMETIMES TAKES NEXIUM TWICE DAILY
     Route: 048
  7. PRILOSEC OTC [Suspect]
     Indication: GASTROOESOPHAGEAL REFLUX DISEASE
     Route: 048
     Dates: start: 201404
  8. PRILOSEC OTC [Suspect]
     Indication: HAEMORRHAGE
     Route: 048
     Dates: start: 201404
  9. PRILOSEC OTC [Suspect]
     Indication: GASTROOESOPHAGEAL REFLUX DISEASE
     Dosage: SOMETIMES TAKES 2 OR MORE PRILOSEC OTC
     Route: 048
     Dates: start: 201404
  10. PRILOSEC OTC [Suspect]
     Indication: HAEMORRHAGE
     Dosage: SOMETIMES TAKES 2 OR MORE PRILOSEC OTC
     Route: 048
     Dates: start: 201404
  11. OMEPRAZOLE [Suspect]
     Indication: GASTROOESOPHAGEAL REFLUX DISEASE
     Route: 048
  12. OMEPRAZOLE [Suspect]
     Indication: HAEMORRHAGE
     Route: 048
  13. DEXILANT [Suspect]
     Route: 065
  14. OXYCODONE [Concomitant]
     Indication: PAIN
     Route: 048
  15. MEPERIDINE [Concomitant]
     Indication: PAIN
     Route: 048
     Dates: start: 201311
  16. PAIN MEDICATIONS [Concomitant]

REACTIONS (9)
  - Haematochezia [Recovered/Resolved]
  - Gait disturbance [Unknown]
  - Aphagia [Not Recovered/Not Resolved]
  - Gastrooesophageal reflux disease [Not Recovered/Not Resolved]
  - Abdominal discomfort [Unknown]
  - Off label use [Unknown]
  - Drug ineffective [Unknown]
  - Intentional product misuse [Unknown]
  - Drug dose omission [Unknown]
